FAERS Safety Report 4688539-5 (Version None)
Quarter: 2005Q2

REPORT INFORMATION
  Report Type: 
  Country: None (occurrence: None)
  Receive Date: 20050609
  Receipt Date: 20050527
  Transmission Date: 20051028
  Serious: Yes (Hospitalization, Other)
  Sender: FDA-Public Use
  Company Number: 2005075795

PATIENT
  Age: 82 Year
  Sex: Female
  Weight: 29.8 kg

DRUGS (6)
  1. UNASYN [Suspect]
     Indication: PNEUMONIA
     Dosage: 6 GRAM (3 GRAM, BID), INTRAVENOUS
     Route: 042
     Dates: start: 20050418, end: 20050419
  2. UNASYN [Suspect]
     Indication: URINARY TRACT INFECTION
     Dosage: 6 GRAM (3 GRAM, BID), INTRAVENOUS
     Route: 042
     Dates: start: 20050418, end: 20050419
  3. XYLOCAINE [Suspect]
     Indication: VENTRICULAR EXTRASYSTOLES
     Dosage: 2400 MG (INKNOWN); INTRAVENOUS
     Route: 042
     Dates: start: 20050326, end: 20050424
  4. FLUMARIN (FLOMOXEF SODIUM) [Concomitant]
  5. TIENAM (CILASTATIN, IMIPENEM) [Concomitant]
  6. BISOLVON (BROMHEXINE HYDROCHLORIDE) [Concomitant]

REACTIONS (9)
  - ALANINE AMINOTRANSFERASE INCREASED [None]
  - ASPARTATE AMINOTRANSFERASE INCREASED [None]
  - DRUG HYPERSENSITIVITY [None]
  - DRUG INEFFECTIVE [None]
  - LIVER DISORDER [None]
  - PNEUMONIA [None]
  - POSTOPERATIVE FEVER [None]
  - STEVENS-JOHNSON SYNDROME [None]
  - URINARY TRACT INFECTION [None]
